FAERS Safety Report 19011109 (Version 1)
Quarter: 2021Q1

REPORT INFORMATION
  Report Type: Spontaneous
  Country: US (occurrence: US)
  Receive Date: 20210315
  Receipt Date: 20210315
  Transmission Date: 20210420
  Serious: Yes (Hospitalization)
  Sender: FDA-Public Use
  Company Number: None

PATIENT
  Sex: Female

DRUGS (1)
  1. STIVARGA [Suspect]
     Active Substance: REGORAFENIB
     Indication: COLON CANCER
     Dosage: QD X DAYS 21 OF 28
     Route: 048
     Dates: start: 202010, end: 202011

REACTIONS (10)
  - Nausea [None]
  - Cushingoid [None]
  - Diabetes mellitus [None]
  - Increased appetite [None]
  - Weight increased [None]
  - Hypertension [None]
  - Hypersensitivity [None]
  - Metastases to central nervous system [None]
  - Pyrexia [None]
  - Vomiting [None]
